FAERS Safety Report 11973020 (Version 1)
Quarter: 2016Q1

REPORT INFORMATION
  Report Type: Spontaneous
  Country: US (occurrence: CA)
  Receive Date: 20160128
  Receipt Date: 20160128
  Transmission Date: 20160526
  Serious: Yes (Other)
  Sender: FDA-Public Use
  Company Number: CA-TEVA-629523USA

PATIENT
  Sex: Male

DRUGS (1)
  1. TEVA-ESCITALOPRAM [Suspect]
     Active Substance: ESCITALOPRAM OXALATE
     Indication: PRODUCT USED FOR UNKNOWN INDICATION
     Dosage: STARTED TAKING PRODUCT APPROXIMATELY A YEAR AGO

REACTIONS (19)
  - Dizziness [Unknown]
  - Paraesthesia [Unknown]
  - Impulsive behaviour [Unknown]
  - Emotional disorder [Unknown]
  - Dissociation [Unknown]
  - Emotional distress [Unknown]
  - Pain [Unknown]
  - Job dissatisfaction [Unknown]
  - Therapeutic response unexpected [Unknown]
  - Emotional poverty [Unknown]
  - Personality change [Unknown]
  - Adverse event [Unknown]
  - Alcohol use [Recovered/Resolved]
  - Withdrawal syndrome [Unknown]
  - Quality of life decreased [Unknown]
  - Feeling abnormal [Recovered/Resolved]
  - Insomnia [Unknown]
  - General physical health deterioration [Unknown]
  - Hyperhidrosis [Unknown]
